FAERS Safety Report 7541235-9 (Version None)
Quarter: 2011Q2

REPORT INFORMATION
  Report Type: 
  Country: None (occurrence: None)
  Receive Date: 20110610
  Receipt Date: 20110606
  Transmission Date: 20111010
  Serious: Yes (Disabling)
  Sender: FDA-Public Use
  Company Number: GB-MERCK-1106GBR00025

PATIENT
  Age: 52 Year
  Sex: Male
  Weight: 95 kg

DRUGS (5)
  1. INSULIN ASPART, BIPHASIC ISOPHANE [INJECTION] [Concomitant]
     Route: 058
  2. JANUVIA [Suspect]
     Indication: DIABETES MELLITUS
     Route: 048
     Dates: start: 20110429, end: 20110505
  3. CITALOPRAM [Concomitant]
     Route: 065
  4. LORATADINE [Concomitant]
     Route: 065
  5. SIMVASTATIN [Concomitant]
     Route: 048

REACTIONS (3)
  - DEPRESSION [None]
  - ABDOMINAL PAIN [None]
  - DIARRHOEA [None]
